FAERS Safety Report 9251398 (Version 4)
Quarter: 2014Q2

REPORT INFORMATION
  Report Type: Spontaneous
  Country: US (occurrence: US)
  Receive Date: 20130424
  Receipt Date: 20140510
  Transmission Date: 20141212
  Serious: No
  Sender: FDA-Public Use
  Company Number: US201204000315

PATIENT
  Age: 62 Year
  Sex: Female
  Weight: 63.49 kg

DRUGS (5)
  1. BYDUREON [Suspect]
     Indication: TYPE 2 DIABETES MELLITUS
     Dosage: 28FEB13
     Route: 058
     Dates: start: 20120401, end: 2013
  2. BYETTA PEN DISPOSABLE [Suspect]
     Indication: TYPE 2 DIABETES MELLITUS
     Dosage: MAR12-MAR12 10MCG?MAR12-31MAR12 5MCG?UNK-FEB12 10MCG?MAY11 5MCG,RESTATED ON 6OCT13
     Route: 058
     Dates: start: 201105
  3. EXENATIDE 5MCG PEN, DISPOSABLE DEVICE [Concomitant]
     Indication: TYPE 2 DIABETES MELLITUS
  4. METFORMIN HCL [Concomitant]
     Indication: TYPE 2 DIABETES MELLITUS
     Route: 058
  5. MIRALAX [Concomitant]

REACTIONS (11)
  - Blood glucose increased [Recovered/Resolved]
  - Increased appetite [Unknown]
  - Ear congestion [Not Recovered/Not Resolved]
  - Weight decreased [Unknown]
  - Vomiting [Not Recovered/Not Resolved]
  - Injection site nodule [Not Recovered/Not Resolved]
  - Constipation [Recovering/Resolving]
  - Nausea [Recovering/Resolving]
  - Decreased appetite [Not Recovered/Not Resolved]
  - Injection site mass [Not Recovered/Not Resolved]
  - Abdominal distension [Unknown]
